FAERS Safety Report 6153565-6 (Version None)
Quarter: 2009Q2

REPORT INFORMATION
  Report Type: 
  Country: None (occurrence: None)
  Receive Date: 20090409
  Receipt Date: 20090409
  Transmission Date: 20091009
  Serious: Yes (Hospitalization)
  Sender: FDA-Public Use
  Company Number: None

PATIENT
  Age: 1 Day
  Sex: Female
  Weight: 4.026 kg

DRUGS (1)
  1. SUBUTEX [Suspect]
     Dosage: 0.4 MG TID PO
     Route: 048

REACTIONS (3)
  - ILL-DEFINED DISORDER [None]
  - MATERNAL DRUGS AFFECTING FOETUS [None]
  - WITHDRAWAL SYNDROME [None]
